FAERS Safety Report 22311130 (Version 12)
Quarter: 2024Q1

REPORT INFORMATION
  Report Type: Spontaneous
  Country: US (occurrence: US)
  Receive Date: 20230511
  Receipt Date: 20240305
  Transmission Date: 20240410
  Serious: No
  Sender: FDA-Public Use
  Company Number: US-PFIZER INC-PV202300082562

PATIENT
  Age: 36 Year
  Sex: Female
  Weight: 83.9 kg

DRUGS (8)
  1. LORBRENA [Suspect]
     Active Substance: LORLATINIB
     Indication: Lung cancer metastatic
     Dosage: 3 TABLETS (75 MG TOTAL) BY MOUTH DAILY
     Route: 048
  2. LORBRENA [Suspect]
     Active Substance: LORLATINIB
     Indication: Lung carcinoma cell type unspecified stage IV
     Dosage: 2 TABLETS (50 MG TOTAL) EVERY OTHER DAY ALTERNATING WITH 3 TABLETS (75 MG TOTAL) EVERY OTHER DAY
     Route: 048
  3. LORBRENA [Suspect]
     Active Substance: LORLATINIB
     Dosage: 2 TABLETS (50 MG TOTAL) EVERY OTHER DAY ALTERNATING WITH 3 TABLETS (75 MG TOTAL) EVERY OTHER DAY
     Route: 048
  4. LORBRENA [Suspect]
     Active Substance: LORLATINIB
     Dosage: 25 MG, 1X/DAY
     Route: 048
  5. LORBRENA [Suspect]
     Active Substance: LORLATINIB
     Dosage: 25 MG
  6. LORBRENA [Suspect]
     Active Substance: LORLATINIB
     Dosage: TWO TABLETS ALTERNATING WITH THREE TABLETS DAILY, 50MG EVERY OTHER DAY THEN 75MG EVERY OTHER DAY
     Dates: start: 20240125
  7. LORBRENA [Suspect]
     Active Substance: LORLATINIB
     Dosage: TWO TABLETS ALTERNATING WITH THREE TABLETS DAILY, 50MG EVERY OTHER DAY THEN 75MG EVERY OTHER DAY
  8. XARELTO [Concomitant]
     Active Substance: RIVAROXABAN
     Indication: Anticoagulant therapy
     Dosage: 20 MG, 1X/DAY
     Route: 048

REACTIONS (7)
  - Product dose omission issue [Unknown]
  - Off label use [Unknown]
  - Off label use [Unknown]
  - Neoplasm recurrence [Unknown]
  - Weight increased [Not Recovered/Not Resolved]
  - Swelling face [Unknown]
  - Fatigue [Not Recovered/Not Resolved]

NARRATIVE: CASE EVENT DATE: 20230701
